FAERS Safety Report 5690683-0 (Version None)
Quarter: 2008Q1

REPORT INFORMATION
  Report Type: 
  Country: None (occurrence: None)
  Receive Date: 20080331
  Receipt Date: 20080331
  Transmission Date: 20080703
  Serious: No
  Sender: FDA-Public Use
  Company Number: None

PATIENT
  Sex: Female
  Weight: 15.4223 kg

DRUGS (2)
  1. SINGULAIR [Suspect]
     Indication: ASTHMA
     Dosage: 1 TABLET BEFORE BED DAILY PO
     Route: 048
     Dates: start: 20060818, end: 20080329
  2. SINGULAIR [Suspect]
     Indication: HYPERSENSITIVITY
     Dosage: 1 TABLET BEFORE BED DAILY PO
     Route: 048
     Dates: start: 20060818, end: 20080329

REACTIONS (7)
  - CONFUSIONAL STATE [None]
  - CRYING [None]
  - INCOHERENT [None]
  - MOOD SWINGS [None]
  - NIGHTMARE [None]
  - SLEEP TERROR [None]
  - SPEECH DISORDER [None]
